FAERS Safety Report 25721582 (Version 1)
Quarter: 2025Q3

REPORT INFORMATION
  Report Type: Spontaneous
  Country: US (occurrence: US)
  Receive Date: 20250825
  Receipt Date: 20250825
  Transmission Date: 20251020
  Serious: No
  Sender: CHATTEM
  Company Number: US-OPELLA-2024OHG039560

PATIENT
  Sex: Female

DRUGS (2)
  1. NASACORT ALLERGY 24HR [Suspect]
     Active Substance: TRIAMCINOLONE ACETONIDE
     Indication: Increased viscosity of upper respiratory secretion
     Dosage: STRENGTH/UNITS: 55 ?G/DOSE
     Dates: start: 202411
  2. NASACORT ALLERGY 24HR [Suspect]
     Active Substance: TRIAMCINOLONE ACETONIDE
     Indication: Oropharyngeal discomfort

REACTIONS (2)
  - Therapeutic response shortened [Unknown]
  - No adverse event [Unknown]

NARRATIVE: CASE EVENT DATE: 20241101
